FAERS Safety Report 6426839-9 (Version None)
Quarter: 2009Q4

REPORT INFORMATION
  Report Type: 
  Country: None (occurrence: None)
  Receive Date: 20091104
  Receipt Date: 20081017
  Transmission Date: 20100525
  Serious: Yes (Other)
  Sender: FDA-Public Use
  Company Number: FR-JNJFOC-20081004303

PATIENT
  Sex: Male
  Weight: 80 kg

DRUGS (5)
  1. RISPERDAL ORO [Suspect]
     Route: 048
  2. RISPERDAL ORO [Suspect]
     Route: 048
  3. RISPERDAL ORO [Suspect]
     Indication: ABNORMAL BEHAVIOUR
     Route: 048
  4. PROZAC [Suspect]
     Indication: AUTISM
     Route: 048
  5. LOVAZA [Concomitant]

REACTIONS (7)
  - AGGRESSION [None]
  - ANXIETY [None]
  - DISTURBANCE IN SOCIAL BEHAVIOUR [None]
  - GENERALISED ERYTHEMA [None]
  - INSOMNIA [None]
  - OFF LABEL USE [None]
  - WEIGHT INCREASED [None]
